FAERS Safety Report 20878320 (Version 1)
Quarter: 2022Q2

REPORT INFORMATION
  Report Type: Spontaneous
  Country: US (occurrence: US)
  Receive Date: 20220526
  Receipt Date: 20220526
  Transmission Date: 20220721
  Serious: No
  Sender: FDA-Public Use
  Company Number: US-GALDERMA-US2021013944

PATIENT

DRUGS (8)
  1. DIFFERIN GEL [Suspect]
     Active Substance: ADAPALENE
     Indication: Acne cystic
     Dosage: 1 DOSAGE FORM
     Route: 061
  2. DIFFERIN GEL [Suspect]
     Active Substance: ADAPALENE
     Indication: Acne
  3. Cerave Cleanser [Concomitant]
     Indication: Product used for unknown indication
  4. Thayers Unscented Toner [Concomitant]
     Indication: Product used for unknown indication
  5. First Aid Beauty Hydrating Serum [Concomitant]
     Indication: Product used for unknown indication
  6. Ordinary Buffet Serum [Concomitant]
     Indication: Product used for unknown indication
  7. Elta night time moisturizer [Concomitant]
     Indication: Product used for unknown indication
  8. Elta SPF [Concomitant]
     Indication: Product used for unknown indication

REACTIONS (6)
  - Acne [Recovered/Resolved]
  - Dry skin [Unknown]
  - Pruritus [Unknown]
  - Skin exfoliation [Unknown]
  - Product use in unapproved indication [Recovered/Resolved]
  - Therapeutic response unexpected [Recovered/Resolved]
